FAERS Safety Report 7146615-1 (Version None)
Quarter: 2010Q4

REPORT INFORMATION
  Report Type: 
  Country: None (occurrence: None)
  Receive Date: 20101208
  Receipt Date: 20101202
  Transmission Date: 20110411
  Serious: Yes (Other)
  Sender: FDA-Public Use
  Company Number: US-PFIZER INC-2010113712

PATIENT
  Sex: Male
  Weight: 86.168 kg

DRUGS (4)
  1. CHANTIX [Suspect]
     Indication: SMOKING CESSATION THERAPY
     Dosage: 0.5 MG, 1X/DAY FOR 3 DAYS
     Route: 048
     Dates: start: 20090709, end: 20090101
  2. CHANTIX [Suspect]
     Indication: TOBACCO ABUSE
     Dosage: .5 MG, 2X/DAY FOR 4 DAYS
     Dates: start: 20090701, end: 20090701
  3. CHANTIX [Suspect]
     Dosage: 1 MG, 2X/DAY
  4. AMBIEN [Suspect]
     Dosage: UNK
     Dates: start: 20091215

REACTIONS (7)
  - ANXIETY [None]
  - DEPRESSION [None]
  - DISTURBANCE IN ATTENTION [None]
  - HEADACHE [None]
  - PANIC ATTACK [None]
  - SLEEP DISORDER [None]
  - WEIGHT DECREASED [None]
